FAERS Safety Report 24138591 (Version 1)
Quarter: 2024Q3

REPORT INFORMATION
  Report Type: Spontaneous
  Country: IN (occurrence: IN)
  Receive Date: 20240725
  Receipt Date: 20240725
  Transmission Date: 20241017
  Serious: Yes (Other)
  Sender: PHARMACEUTICAL ASSOC
  Company Number: IN-PAIPHARMA-2024-IN-000125

PATIENT
  Age: 65 Year
  Sex: Male

DRUGS (2)
  1. PREDNISOLONE [Suspect]
     Active Substance: PREDNISOLONE
     Indication: COVID-19
     Dosage: 16 MG TWICE DAILY
     Route: 048
  2. PIRFENIDONE [Concomitant]
     Active Substance: PIRFENIDONE
     Dosage: 400 MG

REACTIONS (1)
  - Osteonecrosis of jaw [Unknown]
